FAERS Safety Report 7002111-3 (Version None)
Quarter: 2010Q3

REPORT INFORMATION
  Report Type: 
  Country: None (occurrence: None)
  Receive Date: 20100920
  Receipt Date: 20100415
  Transmission Date: 20110219
  Serious: Yes (Other)
  Sender: FDA-Public Use
  Company Number: US-ASTRAZENECA-2009UW20938

PATIENT
  Age: 584 Month
  Sex: Male

DRUGS (4)
  1. SEROQUEL [Suspect]
     Dosage: 25 MG 1/4 TO 1/2 TABLET AT NIGHT
     Route: 048
     Dates: start: 20070501
  2. ADDERALL 10 [Concomitant]
     Dates: start: 20070501
  3. CYMBALTA [Concomitant]
     Dates: start: 20070501
  4. WB XL [Concomitant]
     Dates: start: 20070501

REACTIONS (4)
  - DIABETES MELLITUS [None]
  - HANGOVER [None]
  - KETOACIDOSIS [None]
  - PANCREATITIS [None]
